FAERS Safety Report 9737044 (Version 2)
Quarter: 2013Q4

REPORT INFORMATION
  Report Type: Spontaneous
  Country: US (occurrence: US)
  Receive Date: 20131206
  Receipt Date: 20131206
  Transmission Date: 20140711
  Serious: No
  Sender: FDA-Public Use
  Company Number: US-GILEAD-2009-0023799

PATIENT
  Sex: Female

DRUGS (10)
  1. LETAIRIS [Suspect]
     Indication: PULMONARY ARTERIAL HYPERTENSION
     Route: 048
     Dates: start: 20080821
  2. REVATIO [Concomitant]
  3. FUROSEMIDE [Concomitant]
  4. DILTIAZEM [Concomitant]
  5. GLYBURIDE [Concomitant]
  6. ACTIGALL [Concomitant]
  7. ASPIRIN [Concomitant]
  8. SOTALOL AF [Concomitant]
  9. SYNTHROID [Concomitant]
  10. POTASSIUM [Concomitant]

REACTIONS (1)
  - Tendon pain [Not Recovered/Not Resolved]
